FAERS Safety Report 11471203 (Version 2)
Quarter: 2015Q3

REPORT INFORMATION
  Report Type: Spontaneous
  Country: US (occurrence: US)
  Receive Date: 20150903
  Receipt Date: 20150903
  Transmission Date: 20151125
  Serious: No
  Sender: FDA-Public Use
  Company Number: US-ELI_LILLY_AND_COMPANY-US201201008312

PATIENT
  Sex: Male

DRUGS (8)
  1. AMANTADINE [Concomitant]
     Active Substance: AMANTADINE
  2. SEROQUEL [Concomitant]
     Active Substance: QUETIAPINE FUMARATE
  3. TRIFLUOPERAZINE [Concomitant]
     Active Substance: TRIFLUOPERAZINE\TRIFLUOPERAZINE HYDROCHLORIDE
  4. ASENAPINE [Concomitant]
     Active Substance: ASENAPINE
  5. SIMVASTATIN. [Concomitant]
     Active Substance: SIMVASTATIN
  6. PROTONIX [Concomitant]
     Active Substance: PANTOPRAZOLE SODIUM
  7. CYMBALTA [Suspect]
     Active Substance: DULOXETINE HYDROCHLORIDE
     Indication: DEPRESSION
     Dosage: 30 MG, QD
     Dates: start: 20111220, end: 20111225
  8. ASPIRIN                                 /USA/ [Concomitant]

REACTIONS (3)
  - Dysphagia [Unknown]
  - Odynophagia [Unknown]
  - Urinary retention [Unknown]
